FAERS Safety Report 11580295 (Version 2)
Quarter: 2015Q4

REPORT INFORMATION
  Report Type: Spontaneous
  Country: DE (occurrence: DE)
  Receive Date: 20150930
  Receipt Date: 20151001
  Transmission Date: 20160304
  Serious: Yes (Other)
  Sender: FDA-Public Use
  Company Number: PHHY2015DE105522

PATIENT
  Age: 45 Year
  Sex: Male
  Weight: 73 kg

DRUGS (31)
  1. TEGRETAL [Interacting]
     Active Substance: CARBAMAZEPINE
     Dosage: 2000 MG, QD
     Route: 048
     Dates: start: 199405, end: 199812
  2. SODIUM VALPROATE [Concomitant]
     Active Substance: VALPROATE SODIUM
     Indication: PARTIAL SEIZURES
     Dosage: 1000 MG, QD
     Route: 065
     Dates: start: 198401, end: 198406
  3. CARBAMAZEPINE. [Suspect]
     Active Substance: CARBAMAZEPINE
     Dosage: 1200-1400 MG, QD
     Route: 065
     Dates: start: 198607, end: 198608
  4. RANITIDINE [Interacting]
     Active Substance: RANITIDINE\RANITIDINE HYDROCHLORIDE
     Indication: PRODUCT USED FOR UNKNOWN INDICATION
     Dosage: UNK
     Route: 065
  5. VIGABATRIN [Concomitant]
     Active Substance: VIGABATRIN
     Dosage: 1750 MG, QD
     Route: 065
     Dates: start: 199307, end: 199310
  6. CARBAMAZEPINE. [Suspect]
     Active Substance: CARBAMAZEPINE
     Dosage: 1100-1200 MG, QD
     Route: 065
     Dates: start: 198609, end: 199001
  7. MYLEPSINUM [Suspect]
     Active Substance: PRIMIDONE
     Indication: GENERALISED TONIC-CLONIC SEIZURE
     Dosage: UNK
     Route: 065
  8. MYLEPSINUM [Suspect]
     Active Substance: PRIMIDONE
     Dosage: 250 MG, QD
     Route: 065
     Dates: start: 199211, end: 199303
  9. SODIUM VALPROATE [Concomitant]
     Active Substance: VALPROATE SODIUM
     Dosage: 900-1350 MG, QD
     Route: 065
     Dates: start: 199001, end: 199110
  10. VIGABATRIN [Concomitant]
     Active Substance: VIGABATRIN
     Dosage: 1750-2000 MG, QD
     Route: 065
     Dates: start: 199303, end: 199307
  11. TEGRETAL [Interacting]
     Active Substance: CARBAMAZEPINE
     Dosage: 2000 MG, QD
     Route: 048
     Dates: start: 199307, end: 199310
  12. MYLEPSINUM [Suspect]
     Active Substance: PRIMIDONE
     Dosage: 250 MG, QD
     Route: 065
     Dates: start: 199405, end: 199812
  13. SODIUM VALPROATE [Concomitant]
     Active Substance: VALPROATE SODIUM
     Dosage: 900 MG, QD
     Route: 065
     Dates: start: 198407, end: 198608
  14. VIGABATRIN [Concomitant]
     Active Substance: VIGABATRIN
     Indication: SEIZURE
     Dosage: 1750 MG, QD
     Route: 065
     Dates: start: 199211, end: 199303
  15. TEGRETAL [Interacting]
     Active Substance: CARBAMAZEPINE
     Dosage: 2000 MG, QD
     Route: 048
     Dates: start: 199310, end: 199405
  16. GABAPENTIN. [Suspect]
     Active Substance: GABAPENTIN
     Indication: EPILEPSY
     Dosage: UNK
     Route: 065
     Dates: start: 199902, end: 20150830
  17. GABAPENTIN. [Suspect]
     Active Substance: GABAPENTIN
     Indication: PARTIAL SEIZURES
  18. MYLEPSINUM [Suspect]
     Active Substance: PRIMIDONE
     Indication: PARTIAL SEIZURES
     Dosage: 250-1000 MG, QD
     Route: 065
     Dates: start: 1981
  19. MYLEPSINUM [Suspect]
     Active Substance: PRIMIDONE
     Dosage: 250-312.5 MG, QD
     Route: 065
     Dates: start: 199307, end: 199310
  20. VIGABATRIN [Concomitant]
     Active Substance: VIGABATRIN
     Dosage: 1000-1750 MG, QD
     Route: 065
     Dates: start: 199405, end: 199812
  21. MYLEPSINUM [Suspect]
     Active Substance: PRIMIDONE
     Dosage: 250 MG, QD
     Route: 065
     Dates: start: 199310, end: 199405
  22. SODIUM VALPROATE [Concomitant]
     Active Substance: VALPROATE SODIUM
     Dosage: 1200-1500 MG, QD
     Route: 065
     Dates: start: 198609, end: 199001
  23. PHENYTOIN. [Concomitant]
     Active Substance: PHENYTOIN
     Indication: SEIZURE
     Dosage: 200-300 MG, QD
     Route: 065
     Dates: start: 199201, end: 199205
  24. CARBAMAZEPINE. [Suspect]
     Active Substance: CARBAMAZEPINE
     Indication: EPILEPSY
     Dosage: 600-1400 MG, QD
     Route: 065
     Dates: start: 198407, end: 198605
  25. TEGRETAL [Interacting]
     Active Substance: CARBAMAZEPINE
     Dosage: 2200-2400 MG, QD
     Route: 048
     Dates: start: 199211, end: 199303
  26. TEGRETAL [Interacting]
     Active Substance: CARBAMAZEPINE
     Dosage: 1800-2000 MG, QD
     Route: 048
     Dates: start: 199303, end: 199307
  27. MYLEPSINUM [Suspect]
     Active Substance: PRIMIDONE
     Dosage: 312-500 MG, QD
     Route: 065
     Dates: start: 199101, end: 199111
  28. MYLEPSINUM [Suspect]
     Active Substance: PRIMIDONE
     Dosage: 250 MG, QD
     Route: 065
     Dates: start: 199303, end: 199307
  29. TEGRETAL [Interacting]
     Active Substance: CARBAMAZEPINE
     Indication: EPILEPSY
     Dosage: 1400-1600 MG, QD
     Route: 048
     Dates: start: 199101, end: 199111
  30. TEGRETAL [Interacting]
     Active Substance: CARBAMAZEPINE
     Dosage: 1400-2400 MG, QD
     Route: 048
     Dates: start: 199201, end: 199205
  31. VALPROAT [Concomitant]
     Active Substance: VALPROATE SODIUM
     Indication: SEIZURE
     Dosage: 1200-1800 MG, QD
     Route: 065
     Dates: start: 199101, end: 199111

REACTIONS (18)
  - Glaucoma [Unknown]
  - Mental disorder [Unknown]
  - Tooth disorder [Not Recovered/Not Resolved]
  - Musculoskeletal stiffness [Unknown]
  - Jaw disorder [Unknown]
  - Gingival disorder [Not Recovered/Not Resolved]
  - Gastric ulcer [Recovered/Resolved]
  - Bone metabolism disorder [Not Recovered/Not Resolved]
  - Cervicobrachial syndrome [Unknown]
  - Fatigue [Unknown]
  - Asthenia [Unknown]
  - Oral pain [Unknown]
  - Aggression [Unknown]
  - Visual field defect [Unknown]
  - Arthralgia [Unknown]
  - Gingival atrophy [Unknown]
  - Drug interaction [Unknown]
  - Sciatica [Unknown]

NARRATIVE: CASE EVENT DATE: 200605
